FAERS Safety Report 10350655 (Version 1)
Quarter: 2014Q3

REPORT INFORMATION
  Report Type: Spontaneous
  Country: US (occurrence: None)
  Receive Date: 20140728
  Receipt Date: 20140728
  Transmission Date: 20150326
  Serious: Yes (Other)
  Sender: FDA-Public Use
  Company Number: None

PATIENT
  Age: 58 Year
  Sex: Female
  Weight: 61.24 kg

DRUGS (1)
  1. CIPROFLOXACIN 250 MG [Suspect]
     Active Substance: CIPROFLOXACIN
     Indication: KIDNEY INFECTION
     Dosage: CIPROFLOXACIN 250 MG -- TAKEN BY MOUTH
     Route: 048
     Dates: start: 20140307, end: 20140309

REACTIONS (4)
  - Tendonitis [None]
  - Tendon rupture [None]
  - Nerve injury [None]
  - Dyskinesia [None]

NARRATIVE: CASE EVENT DATE: 20140711
